FAERS Safety Report 8500791-4 (Version None)
Quarter: 2012Q3

REPORT INFORMATION
  Report Type: 
  Country: None (occurrence: None)
  Receive Date: 20120710
  Receipt Date: 20120627
  Transmission Date: 20120928
  Serious: No
  Sender: FDA-Public Use
  Company Number: US-ASTRAZENECA-2012SE43926

PATIENT
  Age: 50 Year
  Sex: Male

DRUGS (3)
  1. NEXIUM [Suspect]
     Route: 048
  2. CRESTOR [Suspect]
     Route: 048
  3. BLOOD PRESSURE MEDICATION [Suspect]
     Route: 065

REACTIONS (4)
  - ADVERSE EVENT [None]
  - DELUSION [None]
  - MALAISE [None]
  - DIZZINESS [None]
